FAERS Safety Report 11108566 (Version 1)
Quarter: 2015Q2

REPORT INFORMATION
  Report Type: Spontaneous
  Country: US (occurrence: US)
  Receive Date: 20150513
  Receipt Date: 20150513
  Transmission Date: 20150821
  Serious: No
  Sender: FDA-Public Use
  Company Number: US-009507513-1505USA003217

PATIENT
  Sex: Female
  Weight: 68.27 kg

DRUGS (2)
  1. NUVARING [Suspect]
     Active Substance: ETHINYL ESTRADIOL\ETONOGESTREL
     Indication: MUSCLE SPASMS
     Dosage: 3 WEEKS IN 1 WEEK OUT
     Route: 067
     Dates: start: 2014
  2. NUVARING [Suspect]
     Active Substance: ETHINYL ESTRADIOL\ETONOGESTREL
     Indication: CONTRACEPTION

REACTIONS (3)
  - Drug administration error [Unknown]
  - Device expulsion [Unknown]
  - Inappropriate schedule of drug administration [Unknown]

NARRATIVE: CASE EVENT DATE: 2014
